FAERS Safety Report 23833468 (Version 1)
Quarter: 2024Q2

REPORT INFORMATION
  Report Type: Spontaneous
  Country: CN (occurrence: CN)
  Receive Date: 20240508
  Receipt Date: 20240508
  Transmission Date: 20240716
  Serious: Yes (Other)
  Sender: FDA-Public Use
  Company Number: CN-TAKEDA-2024TUS043503

PATIENT
  Age: 54 Year
  Sex: Female
  Weight: 55 kg

DRUGS (9)
  1. ADCETRIS [Suspect]
     Active Substance: BRENTUXIMAB VEDOTIN
     Indication: Hodgkin^s disease mixed cellularity refractory
     Dosage: 50 MILLIGRAM, QD
     Route: 041
     Dates: start: 20240125, end: 20240125
  2. SODIUM CHLORIDE [Suspect]
     Active Substance: SODIUM CHLORIDE
     Indication: Hodgkin^s disease mixed cellularity refractory
     Dosage: 40 MILLILITER, QD
     Route: 042
     Dates: start: 20240125, end: 20240125
  3. SODIUM CHLORIDE [Suspect]
     Active Substance: SODIUM CHLORIDE
     Indication: Menstrual disorder
     Dosage: 150 MILLILITER, QD
     Route: 041
     Dates: start: 20240125
  4. DEXTROSE [Suspect]
     Active Substance: DEXTROSE\DEXTROSE MONOHYDRATE
     Indication: Hodgkin^s disease mixed cellularity refractory
     Dosage: 250 MILLILITER, QD
     Route: 041
     Dates: start: 20240125
  5. DEXTROSE [Suspect]
     Active Substance: DEXTROSE\DEXTROSE MONOHYDRATE
     Indication: Menstrual disorder
  6. DOXORUBICIN HYDROCHLORIDE [Suspect]
     Active Substance: DOXORUBICIN HYDROCHLORIDE
     Indication: Hodgkin^s disease mixed cellularity refractory
     Dosage: 40 MILLIGRAM, QD
     Route: 041
     Dates: start: 20240125
  7. VINBLASTINE [Suspect]
     Active Substance: VINBLASTINE
     Indication: Hodgkin^s disease mixed cellularity refractory
     Dosage: UNK
     Route: 065
  8. DACARBAZINE [Suspect]
     Active Substance: DACARBAZINE
     Indication: Hodgkin^s disease mixed cellularity refractory
     Dosage: UNK
     Route: 065
     Dates: start: 20240125
  9. VINDESINE SULFATE [Suspect]
     Active Substance: VINDESINE SULFATE
     Indication: Hodgkin^s disease mixed cellularity refractory
     Dosage: 4 MILLIGRAM, QD
     Route: 042
     Dates: start: 20240125

REACTIONS (1)
  - Cytopenia [Recovering/Resolving]

NARRATIVE: CASE EVENT DATE: 20240130
